FAERS Safety Report 8313329-1 (Version None)
Quarter: 2012Q2

REPORT INFORMATION
  Report Type: 
  Country: None (occurrence: None)
  Receive Date: 20120426
  Receipt Date: 20120418
  Transmission Date: 20120825
  Serious: Yes (Other)
  Sender: FDA-Public Use
  Company Number: PHHY2012HU013142

PATIENT
  Age: 43 Year
  Sex: Female

DRUGS (6)
  1. IMATINIB MESYLATE [Suspect]
     Indication: CHRONIC MYELOID LEUKAEMIA
     Dosage: 400 MG, DAILY
     Route: 065
  2. IMATINIB MESYLATE [Suspect]
     Dosage: 300 MG, UNK
     Route: 065
  3. IMATINIB MESYLATE [Suspect]
     Dosage: 400 MG, UNK
     Route: 065
  4. IMATINIB MESYLATE [Suspect]
     Dosage: 600 MG, DAILY
  5. IMATINIB MESYLATE [Suspect]
     Dosage: 200 MG, UNK
     Route: 065
  6. IMATINIB MESYLATE [Suspect]
     Dosage: 300 MG, UNK
     Route: 065

REACTIONS (3)
  - NORMAL NEWBORN [None]
  - MATERNAL EXPOSURE DURING PREGNANCY [None]
  - SKIN LESION [None]
